FAERS Safety Report 6112374-4 (Version None)
Quarter: 2009Q1

REPORT INFORMATION
  Report Type: 
  Country: None (occurrence: None)
  Receive Date: 20090312
  Receipt Date: 20090309
  Transmission Date: 20090719
  Serious: Yes (Other)
  Sender: FDA-Public Use
  Company Number: US-BAYER-200913178NA

PATIENT
  Age: 55 Year
  Sex: Female
  Weight: 54 kg

DRUGS (7)
  1. BETASERON [Suspect]
     Indication: RELAPSING-REMITTING MULTIPLE SCLEROSIS
     Dosage: TOTAL DAILY DOSE: 8 MIU
     Route: 058
     Dates: start: 20051018
  2. RELAFEN [Concomitant]
     Dosage: UNIT DOSE: 10 MG
  3. NEURONTIN [Concomitant]
     Dosage: TOTAL DAILY DOSE: 900 MG
     Route: 048
  4. PRENATAL VITAMINS PLUS [Concomitant]
  5. DIPROSPAN XL [Concomitant]
     Dosage: TOTAL DAILY DOSE: 5 MG
     Route: 048
  6. VIT D CALCIUM [Concomitant]
  7. BACLOFEN [Concomitant]
     Dosage: TOTAL DAILY DOSE: 10 MG
     Route: 048

REACTIONS (2)
  - DEPRESSION SUICIDAL [None]
  - VITAMIN B12 DEFICIENCY [None]
